FAERS Safety Report 7689302-3 (Version None)
Quarter: 2011Q3

REPORT INFORMATION
  Report Type: 
  Country: None (occurrence: None)
  Receive Date: 20110817
  Receipt Date: 20110809
  Transmission Date: 20111222
  Serious: Yes (Hospitalization)
  Sender: FDA-Public Use
  Company Number: US-BAYER-201037087NA

PATIENT
  Age: 42 Year
  Sex: Female
  Weight: 86.168 kg

DRUGS (9)
  1. LEXAPRO [Concomitant]
     Indication: DEPRESSION
  2. ADVIL LIQUI-GELS [Concomitant]
     Dosage: UNK UNK, PRN
  3. YAZ [Suspect]
     Indication: CONTRACEPTION
     Dosage: UNK
     Route: 048
     Dates: start: 20080801, end: 20081029
  4. LEXAPRO [Concomitant]
     Indication: ANXIETY
  5. ALBUTEROL SULFATE AUTOHALER [Concomitant]
  6. HYDROCODONE BITARTRATE AND ACETAMINOPHEN [Concomitant]
  7. AZITHROMYCIN [Concomitant]
  8. ACETAMINOPHEN [Concomitant]
  9. EXCEDRIN (MIGRAINE) [Concomitant]

REACTIONS (2)
  - PAIN [None]
  - INTRACRANIAL VENOUS SINUS THROMBOSIS [None]
